FAERS Safety Report 7505816-0 (Version None)
Quarter: 2011Q2

REPORT INFORMATION
  Report Type: 
  Country: None (occurrence: None)
  Receive Date: 20110526
  Receipt Date: 20110518
  Transmission Date: 20111010
  Serious: Yes (Hospitalization, Other)
  Sender: FDA-Public Use
  Company Number: US-ELI_LILLY_AND_COMPANY-US201005000640

PATIENT
  Sex: Male
  Weight: 113.38 kg

DRUGS (22)
  1. BYETTA [Suspect]
     Dosage: UNK, UNKNOWN
     Dates: start: 20060105, end: 20080513
  2. LANTUS [Concomitant]
     Indication: DIABETES MELLITUS
     Dosage: UNK
  3. JANUVIA [Concomitant]
     Indication: DIABETES MELLITUS
  4. LISINOPRIL [Concomitant]
     Indication: HYPERTENSION
  5. NEURONTIN [Concomitant]
     Indication: RESTLESS LEGS SYNDROME
     Dosage: 200 MG, EACH EVENING
  6. PREVACID [Concomitant]
     Dosage: 30 MG, QD
  7. LABETALOL [Concomitant]
     Dosage: 100 MG, BID
  8. NORVASC [Concomitant]
     Dosage: 10 MG, QD
  9. DIOVAN [Concomitant]
     Dosage: 80 MG, QD
  10. ASPIRIN [Concomitant]
     Dosage: 81 MG, QD
  11. FELODIPINE [Concomitant]
     Indication: HYPERTENSION
  12. ACETAMINOPHEN [Concomitant]
  13. GABAPENTIN [Concomitant]
     Dosage: 200 MG, EACH EVENING
  14. SIMVASTATIN [Concomitant]
     Indication: PROPHYLAXIS
  15. METOPROLOL TARTRATE [Concomitant]
     Indication: HYPERTENSION
  16. KLOR-CON [Concomitant]
     Dosage: 10 MEQ, QD
  17. AMPICILLIN SODIUM [Concomitant]
     Indication: ANTIBIOTIC THERAPY
  18. GENTAMICIN [Concomitant]
     Indication: ANTIBIOTIC THERAPY
  19. ACTOS [Concomitant]
     Dosage: 45 MG, QD
  20. AMOXICILLIN [Concomitant]
     Indication: ANTIBIOTIC THERAPY
  21. HYDROCHLOROTHIAZIDE [Concomitant]
     Dosage: 25 MG, QD
  22. ZOCOR [Concomitant]
     Dosage: 10 MG, QD

REACTIONS (4)
  - RENAL FAILURE ACUTE [None]
  - PANCREATITIS [None]
  - RENAL IMPAIRMENT [None]
  - OFF LABEL USE [None]
